FAERS Safety Report 8360113-9 (Version None)
Quarter: 2012Q2

REPORT INFORMATION
  Report Type: 
  Country: None (occurrence: None)
  Receive Date: 20120515
  Receipt Date: 20110610
  Transmission Date: 20120825
  Serious: No
  Sender: FDA-Public Use
  Company Number: US-ALEXION-A201100843

PATIENT
  Sex: Female

DRUGS (3)
  1. FOLIC ACID [Concomitant]
     Dosage: UNK
     Route: 048
  2. SOLIRIS [Suspect]
     Indication: PAROXYSMAL NOCTURNAL HAEMOGLOBINURIA
     Dosage: 900 MG, UNK
     Route: 042
  3. COUMADIN [Concomitant]
     Dosage: UNK
     Route: 048

REACTIONS (4)
  - COLITIS MICROSCOPIC [None]
  - FATIGUE [None]
  - CHROMATURIA [None]
  - URINARY TRACT INFECTION [None]
